FAERS Safety Report 5947536-X (Version None)
Quarter: 2008Q4

REPORT INFORMATION
  Report Type: 
  Country: None (occurrence: None)
  Receive Date: 20081110
  Receipt Date: 20081104
  Transmission Date: 20090506
  Serious: Yes (Other)
  Sender: FDA-Public Use
  Company Number: US-GENENTECH-271025

PATIENT
  Age: 94 Year
  Sex: Female

DRUGS (2)
  1. METALYSE [Suspect]
     Indication: ISCHAEMIC STROKE
     Dosage: UNK
  2. PHENYLEPHRINE [Concomitant]
     Indication: BLOOD PRESSURE DECREASED
     Dosage: UNK
     Route: 042

REACTIONS (2)
  - DRUG INEFFECTIVE [None]
  - VASCULAR PSEUDOANEURYSM [None]
